FAERS Safety Report 12561700 (Version 1)
Quarter: 2016Q3

REPORT INFORMATION
  Report Type: Spontaneous
  Country: US (occurrence: US)
  Receive Date: 20160715
  Receipt Date: 20160715
  Transmission Date: 20161109
  Serious: No
  Sender: FDA-Public Use
  Company Number: US-IGSA-GTI004219

PATIENT
  Age: 34 Year
  Sex: Female

DRUGS (28)
  1. QUERCETIN [Concomitant]
     Active Substance: QUERCETIN
  2. LOMOTIL [Concomitant]
     Active Substance: ATROPINE SULFATE\DIPHENOXYLATE HYDROCHLORIDE
  3. ALIVE [Concomitant]
  4. PANTOTHENIC ACID [Concomitant]
     Active Substance: PANTOTHENIC ACID
  5. SALINE /00075401/ [Concomitant]
     Active Substance: SODIUM CHLORIDE
  6. GAMUNEX-C [Suspect]
     Active Substance: HUMAN IMMUNOGLOBULIN G
     Indication: PELVIC INFLAMMATORY DISEASE
     Route: 042
     Dates: start: 20160512
  7. ALFALFA /01255601/ [Concomitant]
     Indication: HAEMORRHAGE
  8. L-LYSINE /00919901/ [Concomitant]
  9. ZINC [Concomitant]
     Active Substance: ZINC\ZINC CHLORIDE
  10. VITAMIN B12 [Concomitant]
     Active Substance: CYANOCOBALAMIN
  11. FIBERCON [Concomitant]
     Active Substance: CALCIUM POLYCARBOPHIL
  12. ZOFRAN [Concomitant]
     Active Substance: ONDANSETRON HYDROCHLORIDE
  13. VITAMIN B6 [Concomitant]
     Active Substance: PYRIDOXINE HYDROCHLORIDE
  14. CRANBERRY /01512301/ [Concomitant]
     Active Substance: CRANBERRY
  15. BENTYL [Concomitant]
     Active Substance: DICYCLOMINE HYDROCHLORIDE
  16. MULTIPLE VITAMINS [Concomitant]
     Active Substance: VITAMINS
  17. COENZYME Q10 [Concomitant]
     Active Substance: UBIDECARENONE
  18. VITAMIN C /00008004/ [Concomitant]
  19. FLONASE [Concomitant]
     Active Substance: FLUTICASONE PROPIONATE
  20. VITAMIN D /00107901/ [Concomitant]
     Active Substance: ERGOCALCIFEROL
  21. FOLIC ACID. [Concomitant]
     Active Substance: FOLIC ACID
  22. MORPHINE /00036302/ [Concomitant]
     Active Substance: MORPHINE
  23. HYDROMORPHONE [Concomitant]
     Active Substance: HYDROMORPHONE
  24. PHENERGAN [Concomitant]
     Active Substance: PROMETHAZINE HYDROCHLORIDE
  25. ORTHO TRI CYCLEN [Concomitant]
     Active Substance: ETHINYL ESTRADIOL\NORGESTIMATE
  26. PROBIOTICS [Concomitant]
     Active Substance: PROBIOTICS NOS
  27. ZYRTEC [Concomitant]
     Active Substance: CETIRIZINE HYDROCHLORIDE
  28. DIAZEPAM. [Concomitant]
     Active Substance: DIAZEPAM

REACTIONS (11)
  - Injection site pain [Recovered/Resolved]
  - Diarrhoea [Recovered/Resolved]
  - Headache [Recovered/Resolved]
  - Abdominal discomfort [Recovered/Resolved]
  - Dysuria [Recovered/Resolved]
  - Chest pain [Recovered/Resolved]
  - Muscle spasms [Recovered/Resolved]
  - Pain [Recovered/Resolved]
  - Fatigue [Not Recovered/Not Resolved]
  - Nausea [Recovered/Resolved]
  - Facial spasm [Recovered/Resolved]

NARRATIVE: CASE EVENT DATE: 20160512
